FAERS Safety Report 7630261-7 (Version None)
Quarter: 2011Q3

REPORT INFORMATION
  Report Type: 
  Country: None (occurrence: None)
  Receive Date: 20110722
  Receipt Date: 20110716
  Transmission Date: 20111222
  Serious: Yes (Other)
  Sender: FDA-Public Use
  Company Number: US-US-EMD SERONO, INC.-7071240

PATIENT
  Sex: Female
  Weight: 80 kg

DRUGS (4)
  1. UNSPECIFIED PAIN MEDICATION [Concomitant]
     Indication: BACK PAIN
  2. PERCOCET [Concomitant]
     Indication: FIBROMYALGIA
  3. FENTANYL-100 [Concomitant]
     Indication: FIBROMYALGIA
  4. REBIF [Suspect]
     Indication: MULTIPLE SCLEROSIS
     Route: 058
     Dates: start: 20020205

REACTIONS (1)
  - CHONDROPATHY [None]
